FAERS Safety Report 15049540 (Version 1)
Quarter: 2018Q2

REPORT INFORMATION
  Report Type: Report from Study
  Country: AU (occurrence: AU)
  Receive Date: 20180622
  Receipt Date: 20180622
  Transmission Date: 20180711
  Serious: Yes (Hospitalization, Other)
  Sender: FDA-Public Use
  Company Number: AU-MYLANLABS-2016M1035573

PATIENT
  Age: 19 Year
  Sex: Female

DRUGS (10)
  1. CLOZARIL [Suspect]
     Active Substance: CLOZAPINE
     Indication: PSYCHOTIC DISORDER
     Dosage: 400 MG, PM
     Route: 048
     Dates: start: 20150505, end: 20160816
  2. LITHIUM CARBONATE. [Concomitant]
     Active Substance: LITHIUM CARBONATE
     Indication: PRODUCT USED FOR UNKNOWN INDICATION
     Dosage: 900 MG, PM
  3. OLANZAPINE. [Concomitant]
     Active Substance: OLANZAPINE
     Dosage: 5 MG, NOON
  4. OLANZAPINE. [Concomitant]
     Active Substance: OLANZAPINE
     Indication: PRODUCT USED FOR UNKNOWN INDICATION
     Dosage: 5 MG, AM
     Dates: start: 201608
  5. METFORMIN [Concomitant]
     Active Substance: METFORMIN HYDROCHLORIDE
     Indication: PRODUCT USED FOR UNKNOWN INDICATION
     Dosage: 1500 MG, UNK
  6. OLANZAPINE. [Concomitant]
     Active Substance: OLANZAPINE
     Dosage: 10 MG, PM
  7. CLOZARIL [Suspect]
     Active Substance: CLOZAPINE
     Indication: SCHIZOPHRENIA
     Dosage: UNK
     Route: 048
     Dates: start: 20150203
  8. CLOZARIL [Suspect]
     Active Substance: CLOZAPINE
     Dosage: 450MG, UNK
     Route: 048
     Dates: start: 20180208
  9. ESCITALOPRAM [Concomitant]
     Active Substance: ESCITALOPRAM OXALATE
     Indication: PRODUCT USED FOR UNKNOWN INDICATION
     Dosage: 10 MG, PM
  10. LURASIDONE [Concomitant]
     Active Substance: LURASIDONE
     Indication: PRODUCT USED FOR UNKNOWN INDICATION
     Dosage: 160 MG, PM

REACTIONS (21)
  - Leukopenia [Recovered/Resolved]
  - Therapeutic product cross-reactivity [Unknown]
  - Emotional distress [Unknown]
  - Mental disorder [Not Recovered/Not Resolved]
  - Malaise [Unknown]
  - Psychotic disorder [Unknown]
  - Judgement impaired [Unknown]
  - Mental status changes [Unknown]
  - Respiratory tract infection viral [Recovering/Resolving]
  - Influenza [Unknown]
  - Thought blocking [Unknown]
  - Vomiting [Unknown]
  - Oropharyngeal pain [Unknown]
  - Neutropenia [Recovered/Resolved]
  - Pancytopenia [Unknown]
  - Pyrexia [Unknown]
  - Anosognosia [Unknown]
  - Depressed mood [Unknown]
  - Hallucination, auditory [Unknown]
  - Eosinophil count increased [Unknown]
  - Nausea [Unknown]

NARRATIVE: CASE EVENT DATE: 201603
